FAERS Safety Report 25973994 (Version 2)
Quarter: 2025Q4

REPORT INFORMATION
  Report Type: Spontaneous
  Country: EU (occurrence: EU)
  Receive Date: 20251029
  Receipt Date: 20251113
  Transmission Date: 20260118
  Serious: Yes (Other)
  Sender: MYLAN
  Company Number: None

PATIENT
  Age: 32 Year
  Sex: Female
  Weight: 60 kg

DRUGS (4)
  1. METOPROLOL [Suspect]
     Active Substance: METOPROLOL
     Indication: Hypertension
     Dosage: 100 MILLIGRAM, BID (1X100MG IN THE MORNING, 1X100MG IN THE EVENING)
     Dates: start: 2023, end: 202509
  2. METOPROLOL [Suspect]
     Active Substance: METOPROLOL
     Dosage: 100 MILLIGRAM, BID (1X100MG IN THE MORNING, 1X100MG IN THE EVENING)
     Route: 048
     Dates: start: 2023, end: 202509
  3. METOPROLOL [Suspect]
     Active Substance: METOPROLOL
     Dosage: 100 MILLIGRAM, BID (1X100MG IN THE MORNING, 1X100MG IN THE EVENING)
     Route: 048
     Dates: start: 2023, end: 202509
  4. METOPROLOL [Suspect]
     Active Substance: METOPROLOL
     Dosage: 100 MILLIGRAM, BID (1X100MG IN THE MORNING, 1X100MG IN THE EVENING)
     Dates: start: 2023, end: 202509

REACTIONS (4)
  - Hallucination [Recovered/Resolved]
  - Panic attack [Recovered/Resolved]
  - Fear of death [Recovered/Resolved]
  - Somnambulism [Recovered/Resolved]

NARRATIVE: CASE EVENT DATE: 20230101
